FAERS Safety Report 20446527 (Version 2)
Quarter: 2022Q1

REPORT INFORMATION
  Report Type: Spontaneous
  Country: US (occurrence: US)
  Receive Date: 20220208
  Receipt Date: 20220307
  Transmission Date: 20220423
  Serious: Yes (Other)
  Sender: FDA-Public Use
  Company Number: US-ORGANON-O2202USA000534

PATIENT
  Sex: Female

DRUGS (1)
  1. NEXPLANON [Suspect]
     Active Substance: ETONOGESTREL
     Indication: Contraception
     Dosage: 1 DOSAGE FORM (ONE EVERY THREE YEARS)
     Route: 059
     Dates: start: 201912

REACTIONS (6)
  - Pregnancy with implant contraceptive [Not Recovered/Not Resolved]
  - Injury [Unknown]
  - Peripheral swelling [Unknown]
  - Unintended pregnancy [Not Recovered/Not Resolved]
  - Implant site bruising [Unknown]
  - Complication associated with device [Not Recovered/Not Resolved]
